FAERS Safety Report 25091177 (Version 1)
Quarter: 2025Q1

REPORT INFORMATION
  Report Type: Spontaneous
  Country: BR (occurrence: BR)
  Receive Date: 20250318
  Receipt Date: 20250318
  Transmission Date: 20250409
  Serious: Yes (Death)
  Sender: ELI LILLY AND COMPANY
  Company Number: BR-ELI_LILLY_AND_COMPANY-BR202503011158

PATIENT
  Sex: Female

DRUGS (2)
  1. ABEMACICLIB [Suspect]
     Active Substance: ABEMACICLIB
     Indication: Product used for unknown indication
     Route: 065
  2. ANASTROZOLE [Concomitant]
     Active Substance: ANASTROZOLE
     Indication: Product used for unknown indication

REACTIONS (1)
  - Death [Fatal]
